FAERS Safety Report 10065514 (Version 1)
Quarter: 2014Q2

REPORT INFORMATION
  Report Type: Spontaneous
  Country: TR (occurrence: TR)
  Receive Date: 20140408
  Receipt Date: 20140408
  Transmission Date: 20141212
  Serious: Yes (Hospitalization)
  Sender: FDA-Public Use
  Company Number: TR-B.I. PHARMACEUTICALS,INC./RIDGEFIELD-2014-BI-14967GD

PATIENT
  Sex: Female

DRUGS (3)
  1. PRAMIPEXOLE [Suspect]
     Indication: PARKINSON^S DISEASE
     Dosage: 3 MG
     Route: 065
  2. RASAGILINE [Suspect]
     Indication: PARKINSON^S DISEASE
     Dosage: 1 MG
     Route: 065
  3. LEVODOPA/BENSERAZIDE HCL [Suspect]
     Indication: PARKINSON^S DISEASE
     Dosage: 300/75 MG/DAY
     Route: 065

REACTIONS (3)
  - Camptocormia [Unknown]
  - Dysstasia [Unknown]
  - Gait disturbance [Unknown]
